FAERS Safety Report 10774968 (Version 1)
Quarter: 2015Q1

REPORT INFORMATION
  Report Type: Spontaneous
  Country: US (occurrence: US)
  Receive Date: 20150209
  Receipt Date: 20150209
  Transmission Date: 20150721
  Serious: No
  Sender: FDA-Public Use
  Company Number: US-ASTRAZENECA-2015SE10349

PATIENT
  Sex: Female
  Weight: 68.5 kg

DRUGS (4)
  1. SINGULAIR [Concomitant]
     Active Substance: MONTELUKAST SODIUM
     Indication: ASTHMA
     Route: 055
     Dates: start: 2012
  2. SYMBICORT [Suspect]
     Active Substance: BUDESONIDE\FORMOTEROL FUMARATE DIHYDRATE
     Indication: ASTHMA
     Dosage: 80/4.5 MCG, 2 PUFFS BID
     Route: 055
  3. LEVOTHYROXINE [Concomitant]
     Active Substance: LEVOTHYROXINE
     Indication: BRAIN OPERATION
     Dosage: 0.1 EVERY MORNING
     Route: 048
     Dates: start: 2008
  4. FLOUXETINE [Concomitant]
     Indication: DEPRESSION
     Route: 065

REACTIONS (4)
  - Depression [Unknown]
  - Road traffic accident [Unknown]
  - Upper respiratory tract infection [Unknown]
  - Memory impairment [Unknown]
